FAERS Safety Report 5131766-3 (Version None)
Quarter: 2006Q4

REPORT INFORMATION
  Report Type: 
  Country: None (occurrence: None)
  Receive Date: 20061016
  Receipt Date: 20060929
  Transmission Date: 20070319
  Serious: Yes (Other)
  Sender: FDA-Public Use
  Company Number: 2006ADE/CIPRO-023

PATIENT
  Age: 52 Year

DRUGS (1)
  1. CIPROFLOXACIN [Suspect]
     Indication: DIARRHOEA
     Dosage: 250 MG, NI, ORAL
     Route: 048
     Dates: start: 20060711, end: 20060711

REACTIONS (3)
  - ANGIONEUROTIC OEDEMA [None]
  - CHEST DISCOMFORT [None]
  - DYSPNOEA [None]
